FAERS Safety Report 8046201-5 (Version None)
Quarter: 2012Q1

REPORT INFORMATION
  Report Type: 
  Country: None (occurrence: None)
  Receive Date: 20120113
  Receipt Date: 20120110
  Transmission Date: 20120608
  Serious: Yes (Other)
  Sender: FDA-Public Use
  Company Number: FR-PFIZER INC-2012006547

PATIENT
  Age: 41 Year
  Sex: Female

DRUGS (1)
  1. CLINDAMYCIN HCL [Suspect]
     Indication: TOOTH ABSCESS
     Dosage: 1 DF, SINGLE
     Route: 048
     Dates: start: 20110701, end: 20110701

REACTIONS (2)
  - SKIN TEST POSITIVE [None]
  - DRUG ERUPTION [None]
